FAERS Safety Report 7810104-9 (Version None)
Quarter: 2011Q4

REPORT INFORMATION
  Report Type: 
  Country: None (occurrence: None)
  Receive Date: 20111012
  Receipt Date: 20111005
  Transmission Date: 20120403
  Serious: Yes (Hospitalization)
  Sender: FDA-Public Use
  Company Number: US-B.I. PHARMACEUTICALS,INC./RIDGEFIELD-2011-BP-23526BP

PATIENT
  Sex: Female

DRUGS (13)
  1. TRAMADOL HCL [Concomitant]
  2. ALBUTEROL [Concomitant]
  3. FOLIC ACID [Concomitant]
  4. CALCIUM SALT [Concomitant]
  5. ADVAIR DISKUS 100/50 [Suspect]
     Route: 055
  6. PREGABALIN [Concomitant]
  7. VITAMIN D [Concomitant]
  8. VENTOLIN HFA [Concomitant]
  9. PERCOCET [Concomitant]
  10. SPIRIVA [Suspect]
     Indication: CHRONIC OBSTRUCTIVE PULMONARY DISEASE
     Route: 055
  11. ADVAIR DISKUS 100/50 [Suspect]
     Indication: CHRONIC OBSTRUCTIVE PULMONARY DISEASE
     Route: 055
     Dates: start: 20110101, end: 20110601
  12. AMITRIPTYLINE HCL [Concomitant]
  13. OMEPRAZOLE [Concomitant]

REACTIONS (5)
  - PNEUMONIA [None]
  - DYSURIA [None]
  - CHEST DISCOMFORT [None]
  - DRUG INTOLERANCE [None]
  - CHEST PAIN [None]
